FAERS Safety Report 6271555-X (Version None)
Quarter: 2009Q3

REPORT INFORMATION
  Report Type: 
  Country: None (occurrence: None)
  Receive Date: 20090715
  Receipt Date: 20090430
  Transmission Date: 20100115
  Serious: Yes (Life-Threatening)
  Sender: FDA-Public Use
  Company Number: 2009020175

PATIENT

DRUGS (1)
  1. SANDOGLOBULIN [Suspect]
     Indication: IMMUNODEFICIENCY COMMON VARIABLE
     Dosage: 30 G INTRAVENOUS (NOT OTHERWISE SPECIFIED)
     Route: 042

REACTIONS (1)
  - ANAPHYLACTIC REACTION [None]
